FAERS Safety Report 8163547-0 (Version None)
Quarter: 2012Q1

REPORT INFORMATION
  Report Type: 
  Country: None (occurrence: None)
  Receive Date: 20120103
  Receipt Date: 20111120
  Transmission Date: 20120608
  Serious: No
  Sender: FDA-Public Use
  Company Number: AE-2011-003840

PATIENT
  Age: 55 Year
  Sex: Female
  Weight: 107.9561 kg

DRUGS (5)
  1. IBUPROFEN (ADVIL) [Concomitant]
  2. BLOOD PRESSURE MEDICINE [Concomitant]
  3. PEGASYS [Concomitant]
  4. RIBAVIRIN [Concomitant]
  5. INCIVEK [Suspect]
     Dosage: 2250 MG (750 MG,3 IN 1 D),ORAL
     Route: 048
     Dates: start: 20111021

REACTIONS (4)
  - FATIGUE [None]
  - HYPOAESTHESIA [None]
  - PARAESTHESIA [None]
  - NAUSEA [None]
